FAERS Safety Report 7624114-8 (Version None)
Quarter: 2011Q3

REPORT INFORMATION
  Report Type: 
  Country: None (occurrence: None)
  Receive Date: 20110720
  Receipt Date: 20110718
  Transmission Date: 20111222
  Serious: Yes (Other)
  Sender: FDA-Public Use
  Company Number: ES-PFIZER INC-2011161728

PATIENT
  Age: 79 Year
  Sex: Female

DRUGS (2)
  1. DOXAZOSIN MESYLATE [Suspect]
     Indication: HYPERTENSION
     Dosage: 5 MG, 1X/DAY
     Route: 048
     Dates: start: 20110201
  2. CARDURA [Suspect]
     Indication: HYPERTENSION
     Dosage: 5 MG, 1X/DAY
     Route: 048
     Dates: start: 19970101

REACTIONS (4)
  - SUFFOCATION FEELING [None]
  - OEDEMA PERIPHERAL [None]
  - COUGH [None]
  - DYSPNOEA [None]
